FAERS Safety Report 17446516 (Version 1)
Quarter: 2020Q1

REPORT INFORMATION
  Report Type: Report from Study
  Country: CO (occurrence: CO)
  Receive Date: 20200221
  Receipt Date: 20200221
  Transmission Date: 20200409
  Serious: Yes (Life-Threatening, Hospitalization)
  Sender: FDA-Public Use
  Company Number: NVSC2020CO012669

PATIENT
  Sex: Male
  Weight: 62 kg

DRUGS (1)
  1. REVOLADE [Suspect]
     Active Substance: ELTROMBOPAG
     Indication: IMMUNE THROMBOCYTOPENIC PURPURA
     Dosage: UNK
     Route: 048

REACTIONS (6)
  - General physical health deterioration [Unknown]
  - Yellow skin [Unknown]
  - Contusion [Unknown]
  - Feeding disorder [Unknown]
  - Platelet count decreased [Unknown]
  - Vomiting [Unknown]
